FAERS Safety Report 9153695 (Version 1)
Quarter: 2013Q1

REPORT INFORMATION
  Report Type: Spontaneous
  Country: US (occurrence: US)
  Receive Date: 20130311
  Receipt Date: 20130311
  Transmission Date: 20140127
  Serious: No
  Sender: FDA-Public Use
  Company Number: US-BAYER-2013-017779

PATIENT
  Age: 62 Year
  Sex: Female

DRUGS (2)
  1. AVELOX [Suspect]
     Dosage: UNK
  2. CLOZAPINE [Concomitant]

REACTIONS (1)
  - White blood cell count decreased [None]
